FAERS Safety Report 6807278-5 (Version None)
Quarter: 2010Q2

REPORT INFORMATION
  Report Type: 
  Country: None (occurrence: None)
  Receive Date: 20100628
  Receipt Date: 20100628
  Transmission Date: 20101027
  Serious: Yes (Other)
  Sender: FDA-Public Use
  Company Number: None

PATIENT
  Sex: Female
  Weight: 60 kg

DRUGS (14)
  1. NITROFURANTOIN [Suspect]
     Indication: URINARY TRACT INFECTION
     Dosage: 100 MG BID PO - YEARS
     Route: 048
  2. COENZYME Q10 [Suspect]
     Indication: CARDIAC FAILURE
     Dosage: 100 MG DAILY PO ; YEARS
     Route: 048
  3. ASPIRIN [Concomitant]
  4. DEPAKOTE ER [Concomitant]
  5. FISH OIL [Concomitant]
  6. LISINOPRIL [Concomitant]
  7. LOVASTATIN [Concomitant]
  8. METOPROLOL TARTRATE [Concomitant]
  9. HYDROCODONE BITARTRATE AND ACETAMINOPHEN [Concomitant]
  10. SEROQUEL [Concomitant]
  11. VITAMINE D [Concomitant]
  12. FUROSEMIDE [Concomitant]
  13. CEPHALEXIN [Concomitant]
  14. OMEPRAZOLE [Concomitant]

REACTIONS (5)
  - DYSPNOEA [None]
  - HYPONATRAEMIA [None]
  - OEDEMA PERIPHERAL [None]
  - THROMBOCYTOPENIA [None]
  - TRANSAMINASES INCREASED [None]
